FAERS Safety Report 9712848 (Version 6)
Quarter: 2014Q2

REPORT INFORMATION
  Report Type: Spontaneous
  Country: PT (occurrence: PT)
  Receive Date: 20131126
  Receipt Date: 20140520
  Transmission Date: 20141212
  Serious: Yes (Hospitalization, Congenital Anomaly, Other)
  Sender: FDA-Public Use
  Company Number: PT-PFIZER INC-2013159136

PATIENT
  Sex: Female
  Weight: 3.37 kg

DRUGS (3)
  1. DOSTINEX [Suspect]
     Indication: HYPERPROLACTINAEMIA
     Dosage: 0.5 MG (1 DF), UNK
     Route: 064
     Dates: end: 201304
  2. M-M-RVAXPRO [Suspect]
     Indication: IMMUNISATION
     Dosage: 1 DF, SINGLE
     Route: 064
     Dates: start: 20130214, end: 20130214
  3. D.T VAX VACCINE [Suspect]
     Indication: IMMUNISATION
     Dosage: 1 DF, SINGLE
     Route: 064
     Dates: start: 20130214, end: 20130214

REACTIONS (12)
  - Maternal exposure during pregnancy [Not Recovered/Not Resolved]
  - Respiratory depth increased [Not Recovered/Not Resolved]
  - Dyspnoea [Not Recovered/Not Resolved]
  - Prolonged expiration [Not Recovered/Not Resolved]
  - Multiple congenital abnormalities [Not Recovered/Not Resolved]
  - Glossoptosis [Not Recovered/Not Resolved]
  - Cleft palate [Not Recovered/Not Resolved]
  - Microgenia [Not Recovered/Not Resolved]
  - Microtia [Not Recovered/Not Resolved]
  - Accessory auricle [Not Recovered/Not Resolved]
  - Anomaly of external ear congenital [Not Recovered/Not Resolved]
  - Eyelid ptosis [Not Recovered/Not Resolved]
